FAERS Safety Report 6982203-5 (Version None)
Quarter: 2010Q3

REPORT INFORMATION
  Report Type: 
  Country: None (occurrence: None)
  Receive Date: 20100914
  Receipt Date: 20091116
  Transmission Date: 20110219
  Serious: No
  Sender: FDA-Public Use
  Company Number: US-PFIZER INC-2009299990

PATIENT
  Sex: Male
  Weight: 90.7 kg

DRUGS (10)
  1. LYRICA [Suspect]
     Indication: SCIATICA
     Dosage: 50 MG, 1X/DAY
     Dates: start: 20090101, end: 20090101
  2. METOPROLOL [Concomitant]
     Dosage: 50 MG, 2X/DAY
  3. ALLOPURINOL [Concomitant]
     Dosage: UNK
  4. POTASSIUM CHLORIDE [Concomitant]
     Dosage: UNK
  5. FUROSEMIDE [Concomitant]
     Dosage: 40 MG, UNK
  6. ACCUPRIN [Concomitant]
     Dosage: UNK
  7. DIGITEK [Concomitant]
     Dosage: UNK
  8. ZOCOR [Concomitant]
     Dosage: UNK
  9. TAMSULOSIN HYDROCHLORIDE [Concomitant]
     Dosage: UNK
  10. ACETYLSALICYLIC ACID [Concomitant]
     Dosage: 81 MG, 2X/DAY

REACTIONS (12)
  - BLOOD PRESSURE FLUCTUATION [None]
  - BLOOD TRIGLYCERIDES INCREASED [None]
  - COLD SWEAT [None]
  - DELUSION [None]
  - DEPRESSION [None]
  - DIZZINESS [None]
  - DRUG INEFFECTIVE [None]
  - DRUG INTOLERANCE [None]
  - EMOTIONAL DISORDER [None]
  - FALL [None]
  - NERVOUSNESS [None]
  - THINKING ABNORMAL [None]
